FAERS Safety Report 5760462-4 (Version None)
Quarter: 2008Q2

REPORT INFORMATION
  Report Type: 
  Country: None (occurrence: None)
  Receive Date: 20080602
  Receipt Date: 20080515
  Transmission Date: 20081010
  Serious: Yes (Hospitalization)
  Sender: FDA-Public Use
  Company Number: 2008AL005226

PATIENT
  Age: 83 Year
  Sex: Male

DRUGS (6)
  1. DIGOXIN [Suspect]
     Indication: ATRIAL FIBRILLATION
     Dosage: 025MG DAILY PO
     Route: 048
  2. DILANTIN [Concomitant]
  3. KEPPRA [Concomitant]
  4. ENALAPRIL MALEATE [Concomitant]
  5. COUMADIN [Concomitant]
  6. SINEMET [Concomitant]

REACTIONS (2)
  - ATRIOVENTRICULAR BLOCK [None]
  - THERAPEUTIC AGENT TOXICITY [None]
